FAERS Safety Report 5190829-7 (Version None)
Quarter: 2006Q4

REPORT INFORMATION
  Report Type: 
  Country: None (occurrence: None)
  Receive Date: 20061214
  Receipt Date: 20061201
  Transmission Date: 20070319
  Serious: Yes (Death, Hospitalization)
  Sender: FDA-Public Use
  Company Number: ES-1160067

PATIENT
  Age: 80 Year
  Sex: Male

DRUGS (4)
  1. COLIRCUSI CICLOPLEJICO [Suspect]
     Dosage: EYE DROPS, SOLUTION, BID; OPHTHALMIC
     Route: 047
     Dates: start: 20060102, end: 20060107
  2. EXOCIN               (OFLOXACIN) [Concomitant]
  3. PRED FORTE [Concomitant]
  4. RIGORAN                (CIPROFLOXACIN HYDROCHLORIDE) [Concomitant]

REACTIONS (2)
  - ANTICHOLINERGIC SYNDROME [None]
  - RHABDOMYOLYSIS [None]
